FAERS Safety Report 4648483-6 (Version None)
Quarter: 2005Q2

REPORT INFORMATION
  Report Type: 
  Country: None (occurrence: None)
  Receive Date: 20050427
  Receipt Date: 20050413
  Transmission Date: 20051028
  Serious: Yes (Hospitalization)
  Sender: FDA-Public Use
  Company Number: FR_050406228

PATIENT
  Age: 41 Year
  Sex: Male
  Weight: 66 kg

DRUGS (4)
  1. GEMZAR [Suspect]
     Indication: PLEURAL MESOTHELIOMA MALIGNANT
     Dosage: 2237 MG OTHER
     Dates: start: 20050217, end: 20050217
  2. CISPLATYL (CISPLATIN PHARMACIA) [Concomitant]
  3. ONDANSETRON HYDROCHLORIDE [Concomitant]
  4. GRANOCYTE (LENOGRASTIM) [Concomitant]

REACTIONS (5)
  - BURNING SENSATION [None]
  - FORMICATION [None]
  - INFUSION SITE INDURATION [None]
  - INFUSION SITE REACTION [None]
  - VEIN DISORDER [None]
